FAERS Safety Report 12114838 (Version 3)
Quarter: 2016Q2

REPORT INFORMATION
  Report Type: Spontaneous
  Country: JO (occurrence: JO)
  Receive Date: 20160225
  Receipt Date: 20160512
  Transmission Date: 20160815
  Serious: Yes (Death, Other)
  Sender: FDA-Public Use
  Company Number: JO-BAYER-2016-033677

PATIENT
  Age: 56 Year
  Sex: Female
  Weight: 60 kg

DRUGS (1)
  1. STIVARGA [Suspect]
     Active Substance: REGORAFENIB
     Indication: COLON CANCER
     Route: 048

REACTIONS (7)
  - Rash [None]
  - Hypocalcaemia [None]
  - Hyponatraemia [None]
  - Blood creatinine increased [None]
  - Platelet count decreased [None]
  - Myocardial infarction [Fatal]
  - Abdominal pain upper [None]

NARRATIVE: CASE EVENT DATE: 20151027
